FAERS Safety Report 8564687-4 (Version None)
Quarter: 2012Q3

REPORT INFORMATION
  Report Type: 
  Country: None (occurrence: None)
  Receive Date: 20120803
  Receipt Date: 20120723
  Transmission Date: 20120928
  Serious: Yes (Hospitalization, Other)
  Sender: FDA-Public Use
  Company Number: JP-ELI_LILLY_AND_COMPANY-JP201207007818

PATIENT
  Age: 65 Year
  Sex: Male

DRUGS (2)
  1. HUMULIN R [Suspect]
     Indication: DIABETES MELLITUS
     Route: 058
  2. HUMULIN R [Suspect]
     Route: 058

REACTIONS (4)
  - HYPOGLYCAEMIC ENCEPHALOPATHY [None]
  - INTENTIONAL OVERDOSE [None]
  - SUICIDE ATTEMPT [None]
  - HYPOGLYCAEMIC COMA [None]
